FAERS Safety Report 6828109-3 (Version None)
Quarter: 2010Q3

REPORT INFORMATION
  Report Type: 
  Country: None (occurrence: None)
  Receive Date: 20100709
  Receipt Date: 20070130
  Transmission Date: 20110219
  Serious: No
  Sender: FDA-Public Use
  Company Number: US-PFIZER INC-2007009398

PATIENT
  Sex: Female
  Weight: 81.6 kg

DRUGS (7)
  1. CHANTIX [Suspect]
     Indication: SMOKING CESSATION THERAPY
     Dosage: INTERVAL: EVERY DAY
     Dates: start: 20061003
  2. BENICAR [Concomitant]
  3. PROZAC [Concomitant]
  4. VYTORIN [Concomitant]
  5. IBUPROFEN [Concomitant]
  6. MULTI-VITAMINS [Concomitant]
  7. FISH OIL [Concomitant]

REACTIONS (1)
  - GINGIVITIS [None]
